FAERS Safety Report 6144299-2 (Version None)
Quarter: 2009Q2

REPORT INFORMATION
  Report Type: 
  Country: None (occurrence: None)
  Receive Date: 20090401
  Receipt Date: 20090320
  Transmission Date: 20091009
  Serious: Yes (Other)
  Sender: FDA-Public Use
  Company Number: 2009AL001770

PATIENT
  Age: 42 Year
  Sex: Female

DRUGS (3)
  1. DICLOFENAC SODIUM [Suspect]
     Indication: SCIATICA
     Dosage: 150 MG;QD;PO
     Route: 048
     Dates: start: 20090121, end: 20090125
  2. VOLTAREN [Concomitant]
  3. NOVALGIN [Concomitant]

REACTIONS (1)
  - DERMATITIS BULLOUS [None]
